FAERS Safety Report 21086122 (Version 1)
Quarter: 2022Q3

REPORT INFORMATION
  Report Type: Spontaneous
  Country: US (occurrence: None)
  Receive Date: 20220715
  Receipt Date: 20220715
  Transmission Date: 20221027
  Serious: Yes (Hospitalization)
  Sender: FDA-Public Use
  Company Number: US-ROCHE-3138940

PATIENT
  Age: 84 Year
  Sex: Female
  Weight: 62.652 kg

DRUGS (1)
  1. ERIVEDGE [Suspect]
     Active Substance: VISMODEGIB
     Indication: Basal cell carcinoma
     Dosage: ONGOING: YES
     Route: 048
     Dates: start: 202204

REACTIONS (5)
  - Urinary tract infection [Unknown]
  - Atrial fibrillation [Unknown]
  - Diarrhoea [Recovering/Resolving]
  - Weight decreased [Unknown]
  - Alopecia [Unknown]

NARRATIVE: CASE EVENT DATE: 20220515
